FAERS Safety Report 20191905 (Version 1)
Quarter: 2021Q4

REPORT INFORMATION
  Report Type: Spontaneous
  Country: US (occurrence: US)
  Receive Date: 20211216
  Receipt Date: 20211216
  Transmission Date: 20220303
  Serious: No
  Sender: FDA-Public Use
  Company Number: US-JNJFOC-20211148419

PATIENT
  Age: 100 Year
  Sex: Female

DRUGS (2)
  1. TYLENOL [Suspect]
     Active Substance: ACETAMINOPHEN
     Indication: Arthritis
     Route: 065
     Dates: start: 20211121
  2. TYLENOL [Suspect]
     Active Substance: ACETAMINOPHEN
     Route: 065
     Dates: start: 202111

REACTIONS (2)
  - Pain [Unknown]
  - Incorrect dose administered [Unknown]

NARRATIVE: CASE EVENT DATE: 20211101
